FAERS Safety Report 25440849 (Version 1)
Quarter: 2025Q2

REPORT INFORMATION
  Report Type: Spontaneous
  Country: US (occurrence: None)
  Receive Date: 20250616
  Receipt Date: 20250616
  Transmission Date: 20250716
  Serious: Yes (Hospitalization)
  Sender: FDA-CTU
  Company Number: None

PATIENT
  Age: 61 Year
  Sex: Female

DRUGS (17)
  1. TACROLIMUS [Suspect]
     Active Substance: TACROLIMUS
     Indication: Prophylaxis against graft versus host disease
     Dosage: 1 MG TWICE A DAY ORAL
     Route: 048
  2. MYCOPHENOLIC ACID [Suspect]
     Active Substance: MYCOPHENOLIC ACID
     Indication: Prophylaxis against graft versus host disease
     Dosage: 360 MG TWICE A DAY ORAL ?
     Route: 048
  3. FLONASE 50MCG NAS SPRAY RX (120SPR) [Concomitant]
  4. ASPIRIN 81MG EC LOW DOSE TABLETS [Concomitant]
  5. ATORVASTATIN 80MG TABLETS [Concomitant]
  6. BUPRENORPHINE 8MG SL TABLETS [Concomitant]
  7. CARVEDILOL 25MG TABLETS [Concomitant]
  8. GABAPENTIN [Concomitant]
     Active Substance: GABAPENTIN
  9. HUMALOG 100 U/ML KWIK PEN INJ 3ML [Concomitant]
  10. LOKELMA [Concomitant]
     Active Substance: SODIUM ZIRCONIUM CYCLOSILICATE
  11. MOUNJARO 12.5MG/0.5ML INJ (4 PENS) [Concomitant]
  12. MULTIVITAMIN ADULTS TABLETS [Concomitant]
  13. OXYCODONE 5MG IMMEDIATE REL TABS [Concomitant]
  14. PANTOPRAZOLE 20MG TABLETS [Concomitant]
  15. ROPINIROLE 1MG TABLETS [Concomitant]
  16. TOUJEO SOLOSTAR 300U/ML PEN [Concomitant]
  17. VITAMIN D3 1,000 UNIT TABLETS [Concomitant]

REACTIONS (1)
  - Urinary tract infection [None]

NARRATIVE: CASE EVENT DATE: 20250615
